FAERS Safety Report 12918302 (Version 1)
Quarter: 2016Q4

REPORT INFORMATION
  Report Type: Spontaneous
  Country: BR (occurrence: BR)
  Receive Date: 20161107
  Receipt Date: 20161107
  Transmission Date: 20170207
  Serious: Yes (Death, Other)
  Sender: FDA-Public Use
  Company Number: BR-PFIZER INC-2016515833

PATIENT
  Age: 95 Year
  Sex: Female
  Weight: 45 kg

DRUGS (4)
  1. SELEGILINE [Concomitant]
     Active Substance: SELEGILINE
     Indication: PARKINSON^S DISEASE
     Dosage: 5 MG, 1X/DAY
     Route: 048
  2. QUETIAPINE. [Concomitant]
     Active Substance: QUETIAPINE
     Indication: SCHIZOPHRENIA
     Dosage: 1 TABLET DAILY
     Route: 048
  3. FRONTAL XR [Suspect]
     Active Substance: ALPRAZOLAM
     Indication: ANXIETY
     Dosage: 0.5 MG, 1X/DAY
     Route: 048
  4. SUSTAGEN [Concomitant]
     Dosage: UNK
     Route: 048

REACTIONS (4)
  - Parkinson^s disease [Fatal]
  - Dementia Alzheimer^s type [Fatal]
  - Dementia [Unknown]
  - Dysphagia [Unknown]
